FAERS Safety Report 11230935 (Version 1)
Quarter: 2015Q3

REPORT INFORMATION
  Report Type: Spontaneous
  Country: GB (occurrence: GB)
  Receive Date: 20150701
  Receipt Date: 20150701
  Transmission Date: 20151125
  Serious: Yes (Hospitalization)
  Sender: FDA-Public Use
  Company Number: GB-BIOGENIDEC-2015BI090298

PATIENT
  Age: 47 Year

DRUGS (2)
  1. TECFIDERA [Suspect]
     Active Substance: DIMETHYL FUMARATE
     Indication: PRODUCT USED FOR UNKNOWN INDICATION
     Route: 048
     Dates: start: 20150510, end: 20150516
  2. TECFIDERA [Suspect]
     Active Substance: DIMETHYL FUMARATE
     Indication: PRODUCT USED FOR UNKNOWN INDICATION
     Route: 048
     Dates: start: 20150517, end: 20150523

REACTIONS (5)
  - Gastroenteritis [Unknown]
  - Malaise [Unknown]
  - Heart rate increased [Unknown]
  - Pyrexia [Unknown]
  - Hot flush [Unknown]

NARRATIVE: CASE EVENT DATE: 20150523
